FAERS Safety Report 6405184 (Version 4)
Quarter: 2013Q4

REPORT INFORMATION
  Report Type: Spontaneous
  Country: ES (occurrence: None)
  Receive Date: 20070824
  Receipt Date: 20131105
  Transmission Date: 20140711
  Serious: Yes (Other)
  Sender: FDA-Public Use
  Company Number: 2007-02806

PATIENT
  Age: 56 Year
  Sex: Female
  Weight: 83 kg

DRUGS (3)
  1. VELCADE [Suspect]
     Indication: PLASMA CELL MYELOMA
     Dosage: 2.41 MG, INTRAVENOUS
     Route: 042
     Dates: start: 20070522, end: 20070814
  2. THALIDOMIDE [Suspect]
     Indication: PLASMA CELL MYELOMA
     Dosage: 200.00 MG, ORAL
     Route: 048
     Dates: start: 20070522, end: 20070816
  3. DEXAMETHASONE (DEXAMETHASONE) [Suspect]
     Indication: PLASMA CELL MYELOMA
     Dosage: 40.00 MG, ORAL
     Route: 048
     Dates: start: 20070522, end: 20070816

REACTIONS (1)
  - Anosmia [None]
